FAERS Safety Report 13500995 (Version 1)
Quarter: 2017Q2

REPORT INFORMATION
  Report Type: Spontaneous
  Country: US (occurrence: US)
  Receive Date: 20170501
  Receipt Date: 20170501
  Transmission Date: 20170830
  Serious: No
  Sender: FDA-Public Use
  Company Number: US-ROCHE-1857744

PATIENT
  Age: 83 Year
  Sex: Male

DRUGS (2)
  1. ESBRIET [Suspect]
     Active Substance: PIRFENIDONE
     Indication: IDIOPATHIC PULMONARY FIBROSIS
     Route: 048
     Dates: start: 20160227, end: 20161121
  2. ESBRIET [Suspect]
     Active Substance: PIRFENIDONE
     Route: 048
     Dates: start: 20160226

REACTIONS (2)
  - Diarrhoea [Unknown]
  - Dizziness [Unknown]

NARRATIVE: CASE EVENT DATE: 20161114
